FAERS Safety Report 14368498 (Version 5)
Quarter: 2018Q2

REPORT INFORMATION
  Report Type: Spontaneous
  Country: CZ (occurrence: CZ)
  Receive Date: 20180109
  Receipt Date: 20180417
  Transmission Date: 20180711
  Serious: Yes (Other)
  Sender: FDA-Public Use
  Company Number: CZ-BAUSCH-BL-2017-036259

PATIENT
  Age: 22 Year
  Sex: Male

DRUGS (8)
  1. METHOTREXATE. [Suspect]
     Active Substance: METHOTREXATE
     Indication: BLASTIC PLASMACYTOID DENDRITIC CELL NEOPLASIA
     Dosage: HIGH-DOSED INDUCTION CHEMOTHERAPY; CYCLICAL
     Route: 065
     Dates: start: 201506
  2. CYTARABINE. [Suspect]
     Active Substance: CYTARABINE
     Indication: BLASTIC PLASMACYTOID DENDRITIC CELL NEOPLASIA
     Dosage: HIGHLY DOSED INDUCTION CHEMOTHERAPY; CYCLICAL
     Route: 037
     Dates: start: 201506
  3. CYTARABINE. [Suspect]
     Active Substance: CYTARABINE
     Dosage: PROPHYLACTIC INTRATHECAL APPLICATION OF CHEMOTHERAPY; CYCLICAL
     Route: 037
     Dates: start: 201506
  4. DEXAMETHASONE. [Suspect]
     Active Substance: DEXAMETHASONE
     Dosage: PROPHYLACTIC INTRATHECAL APPLICATION OF CHEMOTHERAPY ; CYCLICAL
     Route: 037
     Dates: start: 201506
  5. VINDESINE [Suspect]
     Active Substance: VINDESINE
     Indication: BLASTIC PLASMACYTOID DENDRITIC CELL NEOPLASIA
     Dosage: INDUCTION CHEMOTHERAPY; CYCLICAL
     Route: 065
     Dates: start: 201506
  6. ETOPOSIDE. [Suspect]
     Active Substance: ETOPOSIDE
     Indication: BLASTIC PLASMACYTOID DENDRITIC CELL NEOPLASIA
     Dosage: INDUCTION CHEMOTHERAPY; CYCLICAL
     Route: 065
     Dates: start: 201506
  7. METHOTREXATE. [Suspect]
     Active Substance: METHOTREXATE
     Dosage: PROPHYLACTIC INTRATHECAL APPLICATION OF CHEMOTHERAPY; CYCLICAL
     Route: 037
     Dates: start: 201506
  8. DEXAMETHASONE. [Suspect]
     Active Substance: DEXAMETHASONE
     Indication: BLASTIC PLASMACYTOID DENDRITIC CELL NEOPLASIA
     Dosage: INDUCTION CHEMOTHERAPY, CYCLICAL
     Route: 065
     Dates: start: 201506

REACTIONS (2)
  - Odynophagia [Recovered/Resolved]
  - Stomatitis [Recovered/Resolved]

NARRATIVE: CASE EVENT DATE: 201506
